FAERS Safety Report 6983751-4 (Version None)
Quarter: 2010Q3

REPORT INFORMATION
  Report Type: 
  Country: None (occurrence: None)
  Receive Date: 20100914
  Receipt Date: 20090112
  Transmission Date: 20110219
  Serious: No
  Sender: FDA-Public Use
  Company Number: US-WYE-H07695909

PATIENT
  Sex: Female
  Weight: 64.01 kg

DRUGS (4)
  1. ADVIL LIQUI-GELS [Suspect]
     Indication: HEADACHE
     Dosage: 2 CAPSULES X 1
     Route: 048
     Dates: start: 20081201, end: 20081201
  2. ACETYLSALICYLIC ACID [Concomitant]
  3. ZOLOFT [Concomitant]
  4. TOPROL-XL [Concomitant]

REACTIONS (2)
  - RASH [None]
  - SKIN IRRITATION [None]
